FAERS Safety Report 7435083-8 (Version None)
Quarter: 2011Q2

REPORT INFORMATION
  Report Type: 
  Country: None (occurrence: None)
  Receive Date: 20110415
  Receipt Date: 20110407
  Transmission Date: 20111010
  Serious: Yes (Hospitalization, Other)
  Sender: FDA-Public Use
  Company Number: WAES 1103USA02616

PATIENT
  Age: 41 Year
  Sex: Female
  Weight: 54.4316 kg

DRUGS (11)
  1. DECADRON [Suspect]
     Dosage: 2 MG/DAILY/PO
     Route: 048
  2. ARIXTRA [Concomitant]
  3. CELEXA [Concomitant]
  4. KEPPRA [Concomitant]
  5. NEXIUM [Concomitant]
  6. METFORMIN HCL [Concomitant]
  7. NORCO [Concomitant]
  8. BACTRIM [Concomitant]
  9. LANTUS [Suspect]
  10. COLACE [Concomitant]
  11. FENTANYL [Concomitant]

REACTIONS (4)
  - EXTRADURAL ABSCESS [None]
  - LEUKOENCEPHALOPATHY [None]
  - SPINAL CORD COMPRESSION [None]
  - COMPRESSION FRACTURE [None]
